FAERS Safety Report 10035560 (Version 1)
Quarter: 2014Q1

REPORT INFORMATION
  Report Type: Spontaneous
  Country: US (occurrence: None)
  Receive Date: 20140306
  Receipt Date: 20140306
  Transmission Date: 20141002
  Serious: Yes (Hospitalization)
  Sender: FDA-Public Use
  Company Number: 163-21880-12081216

PATIENT
  Age: 65 Year
  Sex: Female
  Weight: 75.93 kg

DRUGS (18)
  1. REVLIMID (LENALIDOMIDE) (10 MILLIGRAM, CAPSULES) [Suspect]
     Indication: PLASMA CELL MYELOMA
     Dosage: 10 MG, 1 IN 2 D, PO
     Route: 048
     Dates: start: 20120711, end: 20120728
  2. VELCADE (BORTEZOMIB) (UNKNOWN) [Suspect]
     Indication: PRODUCT USED FOR UNKNOWN INDICATION
     Route: 042
     Dates: start: 20100817
  3. HYDROCODONE BIT/ACETAMINOPHEN (VICODIN) [Concomitant]
  4. AMITRIPTYLINE HCL (AMITRIPTYLINE HYDROCHLORIDE) (TABLETS) [Concomitant]
  5. BYSTOLIC (NEBIVOLOL HYDROCHLORIDE) (TABLETS) [Concomitant]
  6. CYANOCOBALAMIN [Concomitant]
  7. DEXILANT (DEXLANSOPRAZOLE) (CAPSULES) [Concomitant]
  8. FOLIC ACID [Concomitant]
  9. IMODIUM A-D (LOPERAMIDE HYDROCHLORIDE) [Concomitant]
  10. LOMOTIL [Concomitant]
  11. LORAZEPAM [Concomitant]
  12. ONDANSETRON [Concomitant]
  13. OXYCODONE HCL/ACETAMINOPHEN (OXYCOCET) [Concomitant]
  14. POTASSIUM CHLORIDE [Concomitant]
  15. QUESTRAN (COLESTYRAMINE) [Concomitant]
  16. RESTORIL (TEMAZEPAM) [Concomitant]
  17. TESSALON PERLE (BENZONATATE) [Concomitant]
  18. ZOLPIDEM TARTRATE [Concomitant]

REACTIONS (4)
  - Vomiting [None]
  - Diarrhoea [None]
  - Fatigue [None]
  - Abdominal discomfort [None]
